FAERS Safety Report 17640898 (Version 2)
Quarter: 2020Q2

REPORT INFORMATION
  Report Type: Spontaneous
  Country: US (occurrence: US)
  Receive Date: 20200407
  Receipt Date: 20200515
  Transmission Date: 20200713
  Serious: No
  Sender: FDA-Public Use
  Company Number: US-TEVA-2020-US-1219748

PATIENT
  Age: 68 Year
  Sex: Male

DRUGS (12)
  1. ANORO ELLIPTA [Suspect]
     Active Substance: UMECLIDINIUM BROMIDE\VILANTEROL TRIFENATATE
     Indication: PRODUCT USED FOR UNKNOWN INDICATION
     Dosage: 1 DOSAGE FORMS DAILY;
     Route: 055
     Dates: start: 202003
  2. ACITRETIN. [Suspect]
     Active Substance: ACITRETIN
     Indication: KERATOSIS FOLLICULAR
     Dosage: EVERY OTHER DAY
     Route: 048
     Dates: start: 2017
  3. ACITRETIN. [Suspect]
     Active Substance: ACITRETIN
     Route: 048
     Dates: end: 2020
  4. ALBUTEROL SULFATE. [Suspect]
     Active Substance: ALBUTEROL SULFATE
     Route: 065
  5. ACITRETIN. [Suspect]
     Active Substance: ACITRETIN
     Route: 048
  6. ACITRETIN. [Suspect]
     Active Substance: ACITRETIN
     Dosage: DOSE INCREASED
     Route: 048
  7. TRELEGY ELLIPTA [Suspect]
     Active Substance: FLUTICASONE FUROATE\UMECLIDINIUM BROMIDE\VILANTEROL TRIFENATATE
     Indication: PRODUCT USED FOR UNKNOWN INDICATION
     Dosage: 1 DOSAGE FORMS DAILY;
     Route: 055
     Dates: start: 2017
  8. ASPIRIN. [Concomitant]
     Active Substance: ASPIRIN
  9. ATORVASTATIN [Concomitant]
     Active Substance: ATORVASTATIN
  10. PANTOPRAZOLE [Concomitant]
     Active Substance: PANTOPRAZOLE
  11. CREON [Concomitant]
     Active Substance: PANCRELIPASE AMYLASE\PANCRELIPASE LIPASE\PANCRELIPASE PROTEASE
     Route: 065
  12. ISOSORBIDE. [Concomitant]
     Active Substance: ISOSORBIDE

REACTIONS (9)
  - Abdominal pain upper [Unknown]
  - Throat irritation [Unknown]
  - Blood glucose increased [Unknown]
  - Dyspnoea [Unknown]
  - Drug ineffective [Unknown]
  - Malaise [Unknown]
  - Back pain [Unknown]
  - Rash [Unknown]
  - Presyncope [Unknown]

NARRATIVE: CASE EVENT DATE: 20200227
